FAERS Safety Report 18337918 (Version 1)
Quarter: 2020Q4

REPORT INFORMATION
  Report Type: Spontaneous
  Country: US (occurrence: US)
  Receive Date: 20201001
  Receipt Date: 20201001
  Transmission Date: 20210113
  Serious: Yes (Hospitalization, Other)
  Sender: FDA-Public Use
  Company Number: None

PATIENT
  Age: 88 Year
  Sex: Male
  Weight: 71.6 kg

DRUGS (15)
  1. ALFUZOSIN - HOME MED [Concomitant]
     Indication: COVID-19 TREATMENT
  2. MULTIVITAMIN - HOME MED [Concomitant]
  3. TOPROL XL - HOME MED [Concomitant]
  4. KCL [Concomitant]
     Active Substance: POTASSIUM CHLORIDE
     Dates: start: 20200923, end: 20200923
  5. FOLIC ACID - HOME MED [Concomitant]
  6. SEROQUEL [Concomitant]
     Active Substance: QUETIAPINE FUMARATE
     Dates: start: 20200923, end: 20200923
  7. HEPARIN SQ [Concomitant]
     Dates: start: 20200923, end: 20200924
  8. THIAMINE - HOME MED [Concomitant]
  9. REMDESIVIR UNDER EMERGENCY USE AUTHORIZATION (EUA) [Suspect]
     Active Substance: REMDESIVIR
     Indication: COVID-19 TREATMENT
  10. FLOMAX [Concomitant]
     Active Substance: TAMSULOSIN HYDROCHLORIDE
     Dates: start: 20200923, end: 20200923
  11. ASPIRIN - HOME MED [Concomitant]
  12. MELATONIN - HOME MED [Concomitant]
  13. LIPITOR - HOME MED [Concomitant]
  14. PLAVIX - HOME MED [Concomitant]
  15. MG SULFATE [Concomitant]
     Active Substance: MAGNESIUM SULFATE
     Dates: start: 20200923, end: 20200926

REACTIONS (2)
  - Aspartate aminotransferase increased [None]
  - Alanine aminotransferase increased [None]

NARRATIVE: CASE EVENT DATE: 20200930
